FAERS Safety Report 9129231 (Version 5)
Quarter: 2013Q4

REPORT INFORMATION
  Report Type: Report from Study
  Country: SE (occurrence: SE)
  Receive Date: 20130228
  Receipt Date: 20131010
  Transmission Date: 20140711
  Serious: Yes (Hospitalization, Other)
  Sender: FDA-Public Use
  Company Number: SE-CELGENEUS-150-C5013-13022921

PATIENT
  Age: 74 Year
  Sex: Female
  Weight: 64 kg

DRUGS (6)
  1. CC-5013 [Suspect]
     Indication: MYELODYSPLASTIC SYNDROME
     Route: 048
     Dates: start: 20061019, end: 20061115
  2. CC-5013 [Suspect]
     Route: 048
     Dates: start: 20070109, end: 20070216
  3. REVLIMID [Suspect]
     Indication: MYELODYSPLASTIC SYNDROME
     Route: 048
     Dates: start: 20080512, end: 20081020
  4. INSULIN [Concomitant]
     Indication: PRODUCT USED FOR UNKNOWN INDICATION
     Route: 065
     Dates: start: 1994
  5. CLOMIPRAMINE [Concomitant]
     Indication: PRODUCT USED FOR UNKNOWN INDICATION
     Route: 065
     Dates: start: 1990
  6. PARACETAMOL [Concomitant]
     Indication: PRODUCT USED FOR UNKNOWN INDICATION
     Route: 065
     Dates: start: 20121107

REACTIONS (1)
  - Brain neoplasm [Not Recovered/Not Resolved]
